FAERS Safety Report 8614675-4 (Version None)
Quarter: 2012Q3

REPORT INFORMATION
  Report Type: 
  Country: None (occurrence: None)
  Receive Date: 20120823
  Receipt Date: 20120820
  Transmission Date: 20120928
  Serious: Yes (Hospitalization, Other)
  Sender: FDA-Public Use
  Company Number: CN-BAYER-2012-086296

PATIENT
  Age: 74 Year
  Sex: Male

DRUGS (1)
  1. MAGNEVIST [Suspect]
     Indication: NUCLEAR MAGNETIC RESONANCE IMAGING BRAIN
     Dosage: 15 ML, UNK
     Route: 042
     Dates: start: 20120820, end: 20120820

REACTIONS (5)
  - LARYNGEAL OEDEMA [None]
  - AGITATION [None]
  - HYPERVENTILATION [None]
  - SALIVARY HYPERSECRETION [None]
  - SOMNOLENCE [None]
